FAERS Safety Report 11465778 (Version 1)
Quarter: 2015Q3

REPORT INFORMATION
  Report Type: Spontaneous
  Country: US (occurrence: US)
  Receive Date: 20150907
  Receipt Date: 20150907
  Transmission Date: 20151125
  Serious: No
  Sender: FDA-Public Use
  Company Number: US-ASTRAZENECA-2015SE83130

PATIENT
  Sex: Male
  Weight: 108.9 kg

DRUGS (14)
  1. PERCOCET [Concomitant]
     Active Substance: ACETAMINOPHEN\OXYCODONE HYDROCHLORIDE
     Indication: PAIN
     Route: 048
     Dates: start: 201505
  2. MAGNESIUM [Concomitant]
     Active Substance: MAGNESIUM
     Indication: SLEEP DISORDER
     Dosage: 1 UNK,FOUR TIMES A DAY
     Route: 048
     Dates: start: 20150812
  3. MAGNESIUM [Concomitant]
     Active Substance: MAGNESIUM
     Indication: TREMOR
     Dosage: 1 UNK,FOUR TIMES A DAY
     Route: 048
     Dates: start: 20150812
  4. HYDROCHLOROTHIAZIDE. [Concomitant]
     Active Substance: HYDROCHLOROTHIAZIDE
     Indication: HYPERTENSION
     Route: 048
     Dates: start: 2011
  5. MORPHINE [Concomitant]
     Active Substance: MORPHINE
     Indication: PAIN
     Route: 048
     Dates: start: 201504
  6. VSL PROBIOTIC 3 [Concomitant]
     Indication: ABDOMINAL WALL DISORDER
     Dosage: 2 UNK,DAILY
     Route: 048
     Dates: start: 201504
  7. OXYGEN. [Concomitant]
     Active Substance: OXYGEN
     Route: 055
     Dates: start: 201507
  8. TRAZODONE [Concomitant]
     Active Substance: TRAZODONE HYDROCHLORIDE
     Indication: SLEEP DISORDER
     Route: 048
     Dates: start: 2007
  9. MELATONIN [Concomitant]
     Active Substance: MELATONIN
     Indication: SLEEP DISORDER
     Route: 048
     Dates: start: 2005
  10. CITROPRAM [Concomitant]
     Indication: MOOD SWINGS
     Route: 048
     Dates: start: 1998
  11. MAGNESIUM [Concomitant]
     Active Substance: MAGNESIUM
     Indication: BOWEL MOVEMENT IRREGULARITY
     Dosage: 1 UNK,FOUR TIMES A DAY
     Route: 048
     Dates: start: 20150812
  12. MOVANTIK [Suspect]
     Active Substance: NALOXEGOL OXALATE
     Indication: PLASMA CELL MYELOMA
     Route: 048
     Dates: start: 20150722
  13. DEXAMETHAZONE [Concomitant]
     Active Substance: DEXAMETHASONE
     Indication: CHEMOTHERAPY
     Route: 048
     Dates: start: 201504
  14. ASPIRIN. [Concomitant]
     Active Substance: ASPIRIN
     Indication: BLOOD PRESSURE ABNORMAL
     Route: 048
     Dates: start: 2005

REACTIONS (3)
  - Constipation [Not Recovered/Not Resolved]
  - Off label use [Unknown]
  - Product use issue [Unknown]
